FAERS Safety Report 7564697-X (Version None)
Quarter: 2011Q2

REPORT INFORMATION
  Report Type: 
  Country: None (occurrence: None)
  Receive Date: 20110622
  Receipt Date: 20101102
  Transmission Date: 20111010
  Serious: Yes (Other)
  Sender: FDA-Public Use
  Company Number: US-MYLANLABS-2010S1016447

PATIENT
  Age: 19 Year
  Sex: Male

DRUGS (7)
  1. HALDOL [Concomitant]
  2. ZYPREXA [Concomitant]
  3. CLOZAPINE [Suspect]
     Dates: start: 20101028
  4. COGENTIN [Concomitant]
  5. LITHIUM [Concomitant]
  6. SEROQUEL XR [Concomitant]
  7. CLOZAPINE [Suspect]
     Indication: SCHIZOPHRENIA
     Dates: start: 20100804, end: 20100908

REACTIONS (2)
  - LEUKOPENIA [None]
  - GRANULOCYTOPENIA [None]
